FAERS Safety Report 8139821-0 (Version None)
Quarter: 2012Q1

REPORT INFORMATION
  Report Type: 
  Country: None (occurrence: None)
  Receive Date: 20120215
  Receipt Date: 20120207
  Transmission Date: 20120608
  Serious: Yes (Other)
  Sender: FDA-Public Use
  Company Number: US-ASTRAZENECA-2011SE49415

PATIENT
  Age: 45 Year
  Sex: Female

DRUGS (3)
  1. NEXIUM [Suspect]
     Route: 048
  2. NEXIUM [Suspect]
     Route: 048
  3. PROZAC [Concomitant]

REACTIONS (5)
  - INCORRECT DOSE ADMINISTERED [None]
  - DRUG INEFFECTIVE [None]
  - SYSTEMIC LUPUS ERYTHEMATOSUS [None]
  - HIATUS HERNIA [None]
  - MALIGNANT MELANOMA [None]
